FAERS Safety Report 5869857-1 (Version None)
Quarter: 2008Q3

REPORT INFORMATION
  Report Type: 
  Country: None (occurrence: None)
  Receive Date: 20080904
  Receipt Date: 20080826
  Transmission Date: 20090109
  Serious: Yes (Other)
  Sender: FDA-Public Use
  Company Number: TH-PFIZER INC-2008061503

PATIENT
  Age: 50 Year
  Sex: Female

DRUGS (1)
  1. XALATAN [Suspect]
     Indication: GLAUCOMA
     Dosage: TEXT:OS-FREQ:HS: EVERYDAY
     Route: 047
     Dates: start: 20070101, end: 20080601

REACTIONS (1)
  - CONJUNCTIVAL HYPERAEMIA [None]
